FAERS Safety Report 8317552-1 (Version None)
Quarter: 2012Q2

REPORT INFORMATION
  Report Type: 
  Country: None (occurrence: None)
  Receive Date: 20120427
  Receipt Date: 20120418
  Transmission Date: 20120825
  Serious: Yes (Death, Hospitalization, Other)
  Sender: FDA-Public Use
  Company Number: PHHY2012GB033350

PATIENT
  Age: 43 Year
  Sex: Male

DRUGS (2)
  1. QUETIAPINE [Concomitant]
  2. CLOZAPINE [Suspect]

REACTIONS (15)
  - METABOLIC ACIDOSIS [None]
  - GENERAL PHYSICAL HEALTH DETERIORATION [None]
  - GAIT DISTURBANCE [None]
  - AGITATION [None]
  - RESPIRATORY ARREST [None]
  - CHRONIC OBSTRUCTIVE PULMONARY DISEASE [None]
  - CONFUSIONAL STATE [None]
  - PYREXIA [None]
  - PULMONARY OEDEMA [None]
  - DYSARTHRIA [None]
  - PNEUMONIA [None]
  - RESPIRATORY DISTRESS [None]
  - HYPERGLYCAEMIA [None]
  - DEPRESSED LEVEL OF CONSCIOUSNESS [None]
  - SALIVARY HYPERSECRETION [None]
